FAERS Safety Report 9039292 (Version 1)
Quarter: 2013Q1

REPORT INFORMATION
  Report Type: Spontaneous
  Country: US (occurrence: None)
  Receive Date: 20130123
  Receipt Date: 20130123
  Transmission Date: 20140127
  Serious: Yes (Disabling)
  Sender: FDA-Public Use
  Company Number: None

PATIENT
  Age: 51 Year
  Sex: Female
  Weight: 85.73 kg

DRUGS (1)
  1. LEVOFLOXACIN [Suspect]
     Indication: BRONCHITIS
     Route: 048
     Dates: start: 20121227, end: 20130102

REACTIONS (19)
  - Arthralgia [None]
  - Musculoskeletal pain [None]
  - Arthralgia [None]
  - Pain in extremity [None]
  - Groin pain [None]
  - Arthralgia [None]
  - Pain in extremity [None]
  - Hyperhidrosis [None]
  - Paraesthesia [None]
  - Eye irritation [None]
  - Photophobia [None]
  - Hypoaesthesia [None]
  - Paraesthesia [None]
  - Restless legs syndrome [None]
  - Vulvovaginal pruritus [None]
  - Pruritus [None]
  - Pain [None]
  - Impaired driving ability [None]
  - Gait disturbance [None]
